FAERS Safety Report 10410114 (Version 4)
Quarter: 2014Q4

REPORT INFORMATION
  Report Type: Spontaneous
  Country: US (occurrence: US)
  Receive Date: 20140826
  Receipt Date: 20141030
  Transmission Date: 20150528
  Serious: Yes (Hospitalization, Other)
  Sender: FDA-Public Use
  Company Number: US-GILEAD-2014-0113260

PATIENT
  Age: 75 Year
  Sex: Female

DRUGS (1)
  1. LETAIRIS [Suspect]
     Active Substance: AMBRISENTAN
     Indication: PULMONARY HYPERTENSION
     Dosage: 5 MG, UNK
     Route: 065
     Dates: start: 20121119

REACTIONS (6)
  - Chest pain [Not Recovered/Not Resolved]
  - Syncope [Recovered/Resolved]
  - Haemoglobin decreased [Recovered/Resolved]
  - Muscular weakness [Not Recovered/Not Resolved]
  - Small intestinal haemorrhage [Unknown]
  - Asthenia [Not Recovered/Not Resolved]

NARRATIVE: CASE EVENT DATE: 20140815
